FAERS Safety Report 15965484 (Version 1)
Quarter: 2019Q1

REPORT INFORMATION
  Report Type: Spontaneous
  Country: US (occurrence: US)
  Receive Date: 20190215
  Receipt Date: 20190215
  Transmission Date: 20190418
  Serious: No
  Sender: FDA-Public Use
  Company Number: US-RIGEL PHARMACEUTICALS, INC.-2018FOS000151

PATIENT

DRUGS (2)
  1. TAVALISSE [Suspect]
     Active Substance: FOSTAMATINIB
     Indication: IMMUNE THROMBOCYTOPENIC PURPURA
     Dosage: 100 MG, BID
     Route: 048
     Dates: start: 20181001
  2. TAVALISSE [Suspect]
     Active Substance: FOSTAMATINIB
     Dosage: UNK
     Dates: start: 20181024

REACTIONS (1)
  - Dyspnoea [Unknown]

NARRATIVE: CASE EVENT DATE: 20181005
